FAERS Safety Report 5348248-6 (Version None)
Quarter: 2007Q2

REPORT INFORMATION
  Report Type: 
  Country: None (occurrence: None)
  Receive Date: 20070605
  Receipt Date: 20070524
  Transmission Date: 20071010
  Serious: Yes (Disabling)
  Sender: FDA-Public Use
  Company Number: 16253

PATIENT
  Sex: Female

DRUGS (2)
  1. PACLITAXEL [Suspect]
  2. CARBOPLATIN [Suspect]

REACTIONS (3)
  - ABASIA [None]
  - DRUG TOXICITY [None]
  - PERIPHERAL SENSORIMOTOR NEUROPATHY [None]
